FAERS Safety Report 7430371-3 (Version None)
Quarter: 2011Q2

REPORT INFORMATION
  Report Type: 
  Country: None (occurrence: None)
  Receive Date: 20110421
  Receipt Date: 20100827
  Transmission Date: 20111010
  Serious: No
  Sender: FDA-Public Use
  Company Number: US-ASTRAZENECA-2010SE40442

PATIENT
  Sex: Female

DRUGS (13)
  1. SEROQUEL [Suspect]
     Route: 048
  2. PREMPRO [Concomitant]
  3. HYDROCHLOROTHIAZIDE [Concomitant]
  4. XANAX [Concomitant]
  5. SEROQUEL [Suspect]
     Indication: SLEEP TERROR
     Route: 048
     Dates: start: 20040101
  6. CELEXA [Concomitant]
  7. ANTIVERT [Concomitant]
  8. SEROQUEL [Suspect]
     Indication: DEPRESSION
     Route: 048
     Dates: start: 20040101
  9. SEROQUEL [Suspect]
     Route: 048
  10. TOPROL-XL [Suspect]
     Indication: BLOOD PRESSURE
     Route: 048
     Dates: start: 20040101
  11. KLONOPIN [Concomitant]
  12. ULTRAM [Concomitant]
  13. AMLODIPINE BESYLATE [Concomitant]

REACTIONS (7)
  - INAPPROPRIATE SCHEDULE OF DRUG ADMINISTRATION [None]
  - FIBROMYALGIA [None]
  - DRUG DOSE OMISSION [None]
  - PALPITATIONS [None]
  - HEADACHE [None]
  - INSOMNIA [None]
  - BLOOD PRESSURE INCREASED [None]
